FAERS Safety Report 12265680 (Version 1)
Quarter: 2016Q2

REPORT INFORMATION
  Report Type: Spontaneous
  Country: GB (occurrence: GB)
  Receive Date: 20160413
  Receipt Date: 20160413
  Transmission Date: 20160815
  Serious: Yes (Other)
  Sender: FDA-Public Use
  Company Number: GB-TEVA-650175ACC

PATIENT
  Age: 27 Year
  Sex: Male
  Weight: 60.77 kg

DRUGS (1)
  1. HYDROCORTISONE. [Suspect]
     Active Substance: HYDROCORTISONE
     Dosage: 1 DOSAGE FORMS DAILY;
     Route: 061
     Dates: start: 20160310, end: 20160320

REACTIONS (3)
  - Rash erythematous [Not Recovered/Not Resolved]
  - Feeling hot [Unknown]
  - Withdrawal syndrome [Unknown]

NARRATIVE: CASE EVENT DATE: 20160321
